FAERS Safety Report 5451243-X (Version None)
Quarter: 2007Q3

REPORT INFORMATION
  Report Type: 
  Country: None (occurrence: None)
  Receive Date: 20070911
  Receipt Date: 20070911
  Transmission Date: 20080115
  Serious: Yes (Other)
  Sender: FDA-Public Use
  Company Number: None

PATIENT
  Age: 31 Year
  Sex: Male
  Weight: 85.0494 kg

DRUGS (1)
  1. PHENERGAN [Suspect]
     Indication: ABDOMINAL PAIN
     Dosage: 12.5 IV
     Route: 042
     Dates: start: 20070809, end: 20070809

REACTIONS (2)
  - RASH [None]
  - URTICARIA [None]
